FAERS Safety Report 10080244 (Version 1)
Quarter: 2014Q2

REPORT INFORMATION
  Report Type: Report from Study
  Country: US (occurrence: US)
  Receive Date: 20140415
  Receipt Date: 20140415
  Transmission Date: 20141212
  Serious: Yes (Other)
  Sender: FDA-Public Use
  Company Number: US-BAXTER-2014BAX019031

PATIENT
  Sex: 0

DRUGS (6)
  1. CYCLOPHOSPHAMIDE FOR INJECTION, USP [Suspect]
     Indication: MANTLE CELL LYMPHOMA
     Dosage: DAY 3 EACH CYCLE
     Route: 065
  2. BEVACIZUMAB [Suspect]
     Indication: MANTLE CELL LYMPHOMA
     Dosage: DAY 1
     Route: 065
  3. RITUXIMAB [Suspect]
     Indication: MANTLE CELL LYMPHOMA
     Dosage: DAY 3 EACH CYCLE
     Route: 065
  4. ADRIAMYCIN [Suspect]
     Indication: MANTLE CELL LYMPHOMA
     Dosage: DAY 3 EACH CYCLE
     Route: 065
  5. PREDNISONE [Suspect]
     Indication: MANTLE CELL LYMPHOMA
     Dosage: DAY 3 EACH CYCLE
     Route: 065
  6. VINCRISTINE [Suspect]
     Indication: MANTLE CELL LYMPHOMA
     Dosage: DAY 3 EACH CYCLE
     Route: 065

REACTIONS (1)
  - Proteinuria [Unknown]
